FAERS Safety Report 16565125 (Version 1)
Quarter: 2019Q3

REPORT INFORMATION
  Report Type: Spontaneous
  Country: US (occurrence: US)
  Receive Date: 20190711
  Receipt Date: 20190711
  Transmission Date: 20191004
  Serious: Yes (Other)
  Sender: FDA-Public Use
  Company Number: None

PATIENT
  Age: 21 Year
  Sex: Female
  Weight: 67.5 kg

DRUGS (4)
  1. RISPERIDONE 1MG [Concomitant]
     Active Substance: RISPERIDONE
     Dates: start: 20190626
  2. GEODON [Suspect]
     Active Substance: ZIPRASIDONE HYDROCHLORIDE\ZIPRASIDONE MESYLATE
     Route: 048
     Dates: start: 20190118, end: 20190517
  3. ATIVAN 1MG [Concomitant]
     Dates: start: 20181221, end: 20190711
  4. PROZAC [Concomitant]
     Active Substance: FLUOXETINE HYDROCHLORIDE
     Dates: start: 20161229, end: 20190711

REACTIONS (1)
  - Trismus [None]

NARRATIVE: CASE EVENT DATE: 20190120
